FAERS Safety Report 25171610 (Version 1)
Quarter: 2025Q2

REPORT INFORMATION
  Report Type: Spontaneous
  Country: FR (occurrence: FR)
  Receive Date: 20250408
  Receipt Date: 20250408
  Transmission Date: 20250717
  Serious: Yes (Disabling)
  Sender: BAUSCH AND LOMB
  Company Number: None

PATIENT
  Age: 33 Year
  Sex: Female

DRUGS (1)
  1. DEXAMETHASONE [Suspect]
     Active Substance: DEXAMETHASONE
     Indication: Product used for unknown indication
     Dosage: SUR 30 MIN
     Route: 042
     Dates: start: 20200218, end: 20200225

REACTIONS (1)
  - Reversible cerebral vasoconstriction syndrome [Recovered/Resolved with Sequelae]

NARRATIVE: CASE EVENT DATE: 20200218
